FAERS Safety Report 4571609-X (Version None)
Quarter: 2005Q1

REPORT INFORMATION
  Report Type: 
  Country: None (occurrence: None)
  Receive Date: 20050207
  Receipt Date: 20050202
  Transmission Date: 20050727
  Serious: Yes (Hospitalization)
  Sender: FDA-Public Use
  Company Number: PHNU2005DE00781

PATIENT
  Sex: Female

DRUGS (7)
  1. ESIDRIX [Suspect]
     Dosage: 12.5 MG/D
     Dates: start: 20000630
  2. ESIDRIX [Suspect]
     Dosage: UNK, UNK
     Dates: start: 20000706, end: 20000701
  3. CIPRAMIL [Suspect]
     Dosage: 10 MG/D
     Dates: start: 20000701, end: 20000702
  4. CIPRAMIL [Suspect]
     Dates: start: 20000703, end: 20000707
  5. ALLOPURINOL [Concomitant]
     Dosage: 100 MG/D
     Dates: end: 20000705
  6. EUNERPAN [Concomitant]
     Dates: start: 20000630, end: 20000701
  7. COTRIM [Concomitant]
     Dosage: 160-800 MG/D
     Dates: start: 20000703, end: 20000704

REACTIONS (3)
  - DRUG INTERACTION [None]
  - HYPOKALAEMIA [None]
  - HYPONATRAEMIA [None]
